FAERS Safety Report 16700280 (Version 1)
Quarter: 2019Q3

REPORT INFORMATION
  Report Type: Report from Study
  Country: US (occurrence: US)
  Receive Date: 20190814
  Receipt Date: 20190814
  Transmission Date: 20191004
  Serious: Yes (Hospitalization)
  Sender: FDA-Public Use
  Company Number: US-ROCHE-2374372

PATIENT
  Age: 63 Year
  Sex: Male
  Weight: 91.4 kg

DRUGS (2)
  1. OBINUTUZUMAB. [Suspect]
     Active Substance: OBINUTUZUMAB
     Indication: B-CELL LYMPHOMA REFRACTORY
     Dosage: ON DAY 1?LAST DOSE ADMINISTERED ON 10/APR/2019
     Route: 042
     Dates: start: 20190109
  2. LENALIDOMIDE [Suspect]
     Active Substance: LENALIDOMIDE
     Indication: B-CELL LYMPHOMA REFRACTORY
     Dosage: ON DAYS 1-21?LAST DOSES ADMINISTERED ON 10/APR/2019 AND ON 29/APR/2019?LAST 2 DOSES HELD FOR HIVES
     Route: 048
     Dates: start: 20190109

REACTIONS (5)
  - Haemophilus test positive [Recovering/Resolving]
  - Human rhinovirus test positive [Recovering/Resolving]
  - Cough [Recovered/Resolved]
  - Atelectasis [Recovered/Resolved]
  - Dyspnoea [Recovered/Resolved]

NARRATIVE: CASE EVENT DATE: 20190506
